FAERS Safety Report 18980948 (Version 1)
Quarter: 2021Q1

REPORT INFORMATION
  Report Type: Spontaneous
  Country: US (occurrence: US)
  Receive Date: 20210307
  Receipt Date: 20210307
  Transmission Date: 20210420
  Serious: Yes (Hospitalization)
  Sender: FDA-Public Use
  Company Number: None

PATIENT
  Age: 53 Year
  Sex: Female
  Weight: 81.6 kg

DRUGS (1)
  1. RIVAROXABAN [Suspect]
     Active Substance: RIVAROXABAN
     Indication: THROMBOSIS PROPHYLAXIS
     Route: 048
     Dates: start: 20201020, end: 20201110

REACTIONS (4)
  - Dizziness [None]
  - Vaginal haemorrhage [None]
  - Tachycardia [None]
  - Haemoglobin decreased [None]

NARRATIVE: CASE EVENT DATE: 20201111
